FAERS Safety Report 7091379-3 (Version None)
Quarter: 2010Q4

REPORT INFORMATION
  Report Type: 
  Country: None (occurrence: None)
  Receive Date: 20101109
  Receipt Date: 20101103
  Transmission Date: 20110411
  Serious: Yes (Other)
  Sender: FDA-Public Use
  Company Number: A0890563A

PATIENT
  Age: 59 Year
  Sex: Male

DRUGS (9)
  1. VOTRIENT [Suspect]
     Dosage: 400MG TWICE PER DAY
     Route: 048
     Dates: start: 20101016
  2. TRICOR [Concomitant]
  3. COMPAZINE [Concomitant]
  4. HYDROCODONE [Concomitant]
  5. TYLENOL [Concomitant]
  6. ALEVE (CAPLET) [Concomitant]
  7. ZEGERID [Concomitant]
  8. CLARITIN [Concomitant]
  9. VITAMIN B-12 [Concomitant]

REACTIONS (5)
  - ASPARTATE AMINOTRANSFERASE INCREASED [None]
  - BLOOD BILIRUBIN INCREASED [None]
  - NAUSEA [None]
  - POLLAKIURIA [None]
  - URINE OUTPUT INCREASED [None]
